FAERS Safety Report 15324043 (Version 5)
Quarter: 2021Q2

REPORT INFORMATION
  Report Type: Other
  Country: CA (occurrence: CA)
  Receive Date: 20180828
  Receipt Date: 20210526
  Transmission Date: 20210716
  Serious: Yes (Other)
  Sender: FDA-Public Use
  Company Number: CA-ROCHE-2175425

PATIENT
  Age: 36 Year
  Sex: Female

DRUGS (3)
  1. OCREVUS [Suspect]
     Active Substance: OCRELIZUMAB
     Indication: RELAPSING-REMITTING MULTIPLE SCLEROSIS
     Dosage: 600MG EVERY 6 MONTH
     Route: 042
     Dates: start: 20180302
  2. TYLENOL [Concomitant]
     Active Substance: ACETAMINOPHEN
  3. TYLENOL 3 (UNK INGREDIENTS) [Concomitant]

REACTIONS (6)
  - Fall [Unknown]
  - Cystitis [Recovering/Resolving]
  - Contusion [Not Recovered/Not Resolved]
  - Vision blurred [Unknown]
  - Infection [Unknown]
  - B-lymphocyte count decreased [Unknown]

NARRATIVE: CASE EVENT DATE: 20180817
